FAERS Safety Report 14423949 (Version 1)
Quarter: 2018Q1

REPORT INFORMATION
  Report Type: Spontaneous
  Country: US (occurrence: US)
  Receive Date: 20180122
  Receipt Date: 20180122
  Transmission Date: 20180509
  Serious: Yes (Other)
  Sender: FDA-Public Use
  Company Number: None

PATIENT
  Age: 27 Year
  Sex: Male
  Weight: 71.8 kg

DRUGS (1)
  1. EMEND [Suspect]
     Active Substance: APREPITANT
     Indication: HODGKIN^S DISEASE
     Route: 042
     Dates: start: 20171121

REACTIONS (5)
  - Muscle spasms [None]
  - Chest discomfort [None]
  - Flushing [None]
  - Diaphragmatic disorder [None]
  - Infusion related reaction [None]

NARRATIVE: CASE EVENT DATE: 20171121
